FAERS Safety Report 5379959-4 (Version None)
Quarter: 2007Q3

REPORT INFORMATION
  Report Type: 
  Country: None (occurrence: None)
  Receive Date: 20070706
  Receipt Date: 20070702
  Transmission Date: 20080115
  Serious: Yes (Hospitalization, Other)
  Sender: FDA-Public Use
  Company Number: DE-JNJFOC-20070700116

PATIENT
  Age: 49 Year
  Sex: Female

DRUGS (15)
  1. HALDOL [Suspect]
     Route: 048
  2. HALDOL [Suspect]
     Route: 048
  3. HALDOL [Suspect]
     Route: 048
  4. HALDOL [Suspect]
     Route: 048
  5. HALDOL [Suspect]
     Route: 048
  6. HALDOL [Suspect]
     Route: 048
  7. HALDOL [Suspect]
     Route: 048
  8. HALDOL [Suspect]
     Indication: DRUG USE FOR UNKNOWN INDICATION
     Route: 048
  9. SOLIAN [Interacting]
     Route: 048
  10. SOLIAN [Interacting]
     Route: 048
  11. SOLIAN [Interacting]
     Route: 048
  12. SOLIAN [Interacting]
     Route: 048
  13. SOLIAN [Interacting]
     Route: 048
  14. SOLIAN [Interacting]
     Indication: DRUG USE FOR UNKNOWN INDICATION
     Route: 048
  15. NEUROCIL [Interacting]
     Indication: DRUG USE FOR UNKNOWN INDICATION
     Route: 048

REACTIONS (2)
  - DRUG INTERACTION [None]
  - TARDIVE DYSKINESIA [None]
